FAERS Safety Report 4790054-5 (Version None)
Quarter: 2005Q4

REPORT INFORMATION
  Report Type: 
  Country: None (occurrence: None)
  Receive Date: 20051005
  Receipt Date: 20051005
  Transmission Date: 20060501
  Serious: Yes (Hospitalization)
  Sender: FDA-Public Use
  Company Number: None

PATIENT
  Age: 58 Year
  Sex: Male
  Weight: 114.5 kg

DRUGS (1)
  1. VANCOMYCIN [Suspect]
     Indication: WOUND INFECTION STAPHYLOCOCCAL
     Dosage: ONE DOSE
     Dates: start: 20050901, end: 20050901

REACTIONS (3)
  - DRUG HYPERSENSITIVITY [None]
  - RASH [None]
  - URTICARIA [None]
